FAERS Safety Report 6440159-8 (Version None)
Quarter: 2009Q4

REPORT INFORMATION
  Report Type: 
  Country: None (occurrence: None)
  Receive Date: 20091113
  Receipt Date: 20090501
  Transmission Date: 20100525
  Serious: No
  Sender: FDA-Public Use
  Company Number: A0781673A

PATIENT
  Sex: Female

DRUGS (2)
  1. COREG [Suspect]
     Route: 048
  2. NORVASC [Concomitant]

REACTIONS (1)
  - BLOOD GLUCOSE DECREASED [None]
